FAERS Safety Report 9185106 (Version 2)
Quarter: 2015Q1

REPORT INFORMATION
  Report Type: Spontaneous
  Country: TR (occurrence: TR)
  Receive Date: 20130325
  Receipt Date: 20150107
  Transmission Date: 20150721
  Serious: Yes (Death, Hospitalization)
  Sender: FDA-Public Use
  Company Number: PHHY2013TR027986

PATIENT
  Age: 80 Year
  Sex: Male

DRUGS (3)
  1. AMIODARONE [Suspect]
     Active Substance: AMIODARONE
     Dosage: 400 MG, QD
     Route: 065
  2. AMIODARONE [Suspect]
     Active Substance: AMIODARONE
     Dosage: 900 MG, QD
     Route: 065
  3. AMIODARONE [Suspect]
     Active Substance: AMIODARONE
     Indication: VENTRICULAR TACHYCARDIA
     Dosage: 300 MG, UNK
     Route: 040

REACTIONS (14)
  - Acute hepatic failure [Fatal]
  - Jaundice [Fatal]
  - Acute kidney injury [Unknown]
  - Bundle branch block left [Unknown]
  - Rales [Unknown]
  - Ocular icterus [Fatal]
  - Nausea [Fatal]
  - Vomiting [Fatal]
  - Tenderness [Unknown]
  - Disorientation [Fatal]
  - Cardio-respiratory arrest [Fatal]
  - Palpitations [Unknown]
  - Atrial fibrillation [Unknown]
  - Dyspnoea [Unknown]
